FAERS Safety Report 4446530-8 (Version None)
Quarter: 2004Q3

REPORT INFORMATION
  Report Type: 
  Country: None (occurrence: None)
  Receive Date: 20040908
  Receipt Date: 20040820
  Transmission Date: 20050211
  Serious: Yes (Hospitalization)
  Sender: FDA-Public Use
  Company Number: 2004230005DE

PATIENT
  Age: 52 Year
  Sex: Female
  Weight: 79 kg

DRUGS (3)
  1. FARMORUBICIN (EPIRUBICIN HYDROCHLORIDE) SOLUTION, STERILE [Suspect]
     Indication: BREAST CANCER FEMALE
     Dosage: 88 MG, DAY 1+8, CYCLIC, IV
     Route: 042
     Dates: start: 20040209, end: 20040216
  2. FLUOROURACIL [Suspect]
     Indication: BREAST CANCER FEMALE
     Dosage: 725 MG, DAY 1+8, CYCLIC, IV
     Route: 042
     Dates: start: 20040209, end: 20040216
  3. CYCLOPHOSPHAMIDE [Suspect]
     Indication: BREAST CANCER FEMALE
     Dosage: 103 MG, DAILY, CYCLIC, ORAL
     Route: 048
     Dates: start: 20040209, end: 20040223

REACTIONS (4)
  - COUGH [None]
  - DYSPNOEA [None]
  - MUCOSAL INFLAMMATION [None]
  - POST PROCEDURAL COMPLICATION [None]
